FAERS Safety Report 8248699-6 (Version None)
Quarter: 2012Q1

REPORT INFORMATION
  Report Type: 
  Country: None (occurrence: None)
  Receive Date: 20120331
  Receipt Date: 20120326
  Transmission Date: 20120608
  Serious: Yes (Disabling)
  Sender: FDA-Public Use
  Company Number: PHHY2012CA000850

PATIENT
  Sex: Female
  Weight: 84 kg

DRUGS (18)
  1. VITAMIN D [Concomitant]
     Dosage: 800 IU, QD
     Dates: start: 20010118
  2. DIDROCAL [Concomitant]
     Dosage: 400 MG, QD
  3. ZOLEDRONOC ACID [Suspect]
     Indication: OSTEOPOROSIS
     Dosage: 5 MG, ANNUALLY
     Route: 042
     Dates: start: 20100324
  4. ADALAT CC [Concomitant]
  5. METOPROLOL SUCCINATE [Concomitant]
  6. EVISTA [Concomitant]
     Dosage: 670 MG, QD
  7. HORMONES [Concomitant]
     Dosage: UNK UKN, QD
  8. FORTEO [Concomitant]
     Dosage: 20 MG, QD
  9. ASPIRIN [Concomitant]
  10. CALCIUM CARBONATE [Concomitant]
     Dosage: 1000 MG, UNK
     Dates: start: 20010118
  11. ZOLEDRONOC ACID [Suspect]
     Dosage: 5 MG, ANNUALLY
     Route: 042
     Dates: start: 20110323
  12. REGULAR INSULIN [Concomitant]
  13. CRESTOR [Concomitant]
  14. MIACALCIN [Concomitant]
     Dosage: 200 IU, QD
  15. LISINOPRIL [Concomitant]
  16. IMDUR [Concomitant]
  17. SYNTHROID [Concomitant]
  18. METFORMIN HCL [Concomitant]

REACTIONS (3)
  - RENAL FAILURE ACUTE [None]
  - RENAL IMPAIRMENT [None]
  - INFUSION SITE REACTION [None]
